FAERS Safety Report 22076031 (Version 2)
Quarter: 2023Q2

REPORT INFORMATION
  Report Type: Spontaneous
  Country: FI (occurrence: FI)
  Receive Date: 20230308
  Receipt Date: 20230419
  Transmission Date: 20230721
  Serious: Yes (Death, Hospitalization, Other)
  Sender: FDA-Public Use
  Company Number: FI-BAXTER-2023BAX014727

PATIENT
  Age: 60 Year
  Sex: Male

DRUGS (1)
  1. SODIUM CHLORIDE [Suspect]
     Active Substance: SODIUM CHLORIDE
     Indication: Device priming
     Dosage: AT UNSPECIFIED DOSE AND FREQUENCY (BAG 6 CF 2000 ML BILUER SCV)
     Route: 065

REACTIONS (2)
  - Cardiac failure [Fatal]
  - Road traffic accident [Unknown]

NARRATIVE: CASE EVENT DATE: 20230301
